FAERS Safety Report 4730528-6 (Version None)
Quarter: 2005Q3

REPORT INFORMATION
  Report Type: 
  Country: None (occurrence: None)
  Receive Date: 20050801
  Receipt Date: 20050722
  Transmission Date: 20060218
  Serious: Yes (Hospitalization, Other)
  Sender: FDA-Public Use
  Company Number: PHBS2005JP10785

PATIENT
  Age: 34 Year
  Sex: Male

DRUGS (5)
  1. CYCLOSPORINE [Suspect]
     Indication: RENAL TRANSPLANT
     Dates: start: 19900101
  2. CYCLOSPORINE [Suspect]
     Dates: start: 19930301
  3. PREDNISOLONE [Suspect]
     Indication: RENAL TRANSPLANT
     Dosage: 60 MG/DAY, TAPERED
     Dates: start: 19900101
  4. PREDNISOLONE [Suspect]
     Dates: start: 19930301
  5. AZATHIOPRINE [Suspect]
     Indication: RENAL TRANSPLANT
     Dates: start: 19930301

REACTIONS (11)
  - ASCITES [None]
  - FACE OEDEMA [None]
  - GLOMERULONEPHRITIS MEMBRANOPROLIFERATIVE [None]
  - HAEMATURIA [None]
  - HAEMODIALYSIS [None]
  - HYPOPROTEINAEMIA [None]
  - NEPHROTIC SYNDROME [None]
  - OEDEMA PERIPHERAL [None]
  - PROTEINURIA [None]
  - RENAL FAILURE CHRONIC [None]
  - RENAL IMPAIRMENT [None]
